FAERS Safety Report 18042031 (Version 1)
Quarter: 2020Q3

REPORT INFORMATION
  Report Type: Spontaneous
  Country: FR (occurrence: FR)
  Receive Date: 20200720
  Receipt Date: 20200720
  Transmission Date: 20201103
  Serious: Yes (Other)
  Sender: FDA-Public Use
  Company Number: FR-AUROBINDO-AUR-APL-2020-036043

PATIENT
  Age: 71 Year
  Sex: Male

DRUGS (3)
  1. MELPHALAN. [Suspect]
     Active Substance: MELPHALAN
     Indication: PLASMA CELL MYELOMA
     Dosage: 80 MILLIGRAM, EVERY WEEK (5 WEEKS PER CYCLE)
     Route: 065
  2. VELCADE [Suspect]
     Active Substance: BORTEZOMIB
     Indication: PLASMA CELL MYELOMA
     Dosage: 5 MILLIGRAM, EVERY WEEK (5 WEEKS PER CYCLE)
     Route: 065
  3. PREDNISONE. [Suspect]
     Active Substance: PREDNISONE
     Indication: PLASMA CELL MYELOMA
     Dosage: 32.8 MILLIGRAM, EVERY WEEK (5 WEEKS PER CYCLE)
     Route: 065

REACTIONS (1)
  - Haematotoxicity [Unknown]
